FAERS Safety Report 4848515-6 (Version None)
Quarter: 2005Q4

REPORT INFORMATION
  Report Type: 
  Country: None (occurrence: None)
  Receive Date: 20051206
  Receipt Date: 20051118
  Transmission Date: 20060501
  Serious: No
  Sender: FDA-Public Use
  Company Number: USA0511112836

PATIENT
  Sex: Male
  Weight: 40.9 kg

DRUGS (2)
  1. STRATTERA [Suspect]
     Indication: EDUCATIONAL PROBLEM
     Dates: start: 20030101
  2. SINGULAIR [Concomitant]

REACTIONS (5)
  - BLOOD PRESSURE DIASTOLIC INCREASED [None]
  - DRUG INTERACTION [None]
  - EYE DISORDER [None]
  - FATIGUE [None]
  - SKIN DISCOLOURATION [None]
